FAERS Safety Report 20947119 (Version 1)
Quarter: 2022Q2

REPORT INFORMATION
  Report Type: Spontaneous
  Country: SY (occurrence: SY)
  Receive Date: 20220610
  Receipt Date: 20220610
  Transmission Date: 20220721
  Serious: Yes (Hospitalization)
  Sender: FDA-Public Use
  Company Number: SY-BAUSCH-BL-2022-014333

PATIENT
  Age: 38 Year
  Sex: Female

DRUGS (1)
  1. DEXAMETHASONE [Suspect]
     Active Substance: DEXAMETHASONE
     Indication: Arthritis
     Route: 030

REACTIONS (3)
  - Psoas abscess [Recovered/Resolved]
  - Tuberculosis [Recovered/Resolved]
  - Osteomyelitis [Not Recovered/Not Resolved]
